FAERS Safety Report 12432752 (Version 1)
Quarter: 2016Q2

REPORT INFORMATION
  Report Type: Spontaneous
  Country: US (occurrence: US)
  Receive Date: 20160603
  Receipt Date: 20160603
  Transmission Date: 20160815
  Serious: No
  Sender: FDA-Public Use
  Company Number: US-TEVA-660246ACC

PATIENT
  Age: 29 Year
  Sex: Female
  Weight: 59.02 kg

DRUGS (2)
  1. TAKE ACTION [Suspect]
     Active Substance: LEVONORGESTREL
     Indication: POST COITAL CONTRACEPTION
     Dates: start: 20160502, end: 20160502
  2. TAKE ACTION [Suspect]
     Active Substance: LEVONORGESTREL
     Dates: start: 20160507, end: 20160507

REACTIONS (2)
  - Breast tenderness [Recovered/Resolved]
  - Abdominal distension [Not Recovered/Not Resolved]

NARRATIVE: CASE EVENT DATE: 20160503
